FAERS Safety Report 9729783 (Version 2)
Quarter: 2013Q4

REPORT INFORMATION
  Report Type: Spontaneous
  Country: US (occurrence: US)
  Receive Date: 20131204
  Receipt Date: 20131204
  Transmission Date: 20140711
  Serious: No
  Sender: FDA-Public Use
  Company Number: US-GILEAD-2009-0021818

PATIENT
  Sex: Female

DRUGS (1)
  1. LETAIRIS [Suspect]
     Indication: PULMONARY ARTERIAL HYPERTENSION
     Dates: start: 2009

REACTIONS (4)
  - Insomnia [Unknown]
  - Night sweats [Unknown]
  - Vulvovaginal burning sensation [Unknown]
  - Urine output increased [Unknown]
